FAERS Safety Report 14791186 (Version 1)
Quarter: 2018Q2

REPORT INFORMATION
  Report Type: Spontaneous
  Country: US (occurrence: US)
  Receive Date: 20180413
  Receipt Date: 20180413
  Transmission Date: 20180711
  Serious: Yes (Hospitalization)
  Sender: FDA-Public Use
  Company Number: None

PATIENT
  Age: 32 Year
  Sex: Male

DRUGS (1)
  1. SANDOSTATIN [Suspect]
     Active Substance: OCTREOTIDE ACETATE
     Indication: FIBROUS DYSPLASIA OF BONE
     Route: 030
     Dates: start: 20170707

REACTIONS (2)
  - Drug dose omission [None]
  - Upper limb fracture [None]

NARRATIVE: CASE EVENT DATE: 20180101
